FAERS Safety Report 8662882 (Version 4)
Quarter: 2018Q4

REPORT INFORMATION
  Report Type: Report from Study
  Country: CA (occurrence: CA)
  Receive Date: 20120712
  Receipt Date: 20181027
  Transmission Date: 20190205
  Serious: Yes (Hospitalization, Disabling, Other)
  Sender: FDA-Public Use
  Company Number: CA-009507513-1206USA05091

PATIENT
  Sex: Male
  Weight: 118 kg

DRUGS (8)
  1. XENICAL [Concomitant]
     Active Substance: ORLISTAT
     Indication: WEIGHT CONTROL
     Dosage: 120 MILLIGRAM, 3X/DAY
     Dates: start: 2004
  2. EZETROL [Suspect]
     Active Substance: EZETIMIBE
     Dosage: 10 MG, QD
     Route: 048
     Dates: start: 201009
  3. BISOPROLOL [Concomitant]
     Active Substance: BISOPROLOL
     Dosage: 10 MILLIGRAM, 1X/DAY
  4. PANTOPRAZOLE SODIUM. [Concomitant]
     Active Substance: PANTOPRAZOLE SODIUM
     Indication: ABDOMINAL DISCOMFORT
     Dosage: 40 MILLIGRAM, 1X/DAY
     Dates: start: 2001
  5. LIPITOR [Suspect]
     Active Substance: ATORVASTATIN CALCIUM
     Indication: BLOOD CHOLESTEROL INCREASED
     Dosage: 80 MG, 1X/DAY AT BEDTIME
     Route: 048
     Dates: start: 20020128, end: 201009
  6. PLAVIX [Concomitant]
     Active Substance: CLOPIDOGREL BISULFATE
     Indication: ANTICOAGULANT THERAPY
     Dosage: 75 MILLIGRAM, 1X/DAY
     Dates: start: 2001
  7. LIPITOR [Suspect]
     Active Substance: ATORVASTATIN CALCIUM
     Indication: INFARCTION
  8. ASAPHEN [Concomitant]
     Active Substance: ASPIRIN
     Indication: BLOOD PRESSURE ABNORMAL
     Dosage: 80 MILLIGRAM, 1X/DAY
     Dates: start: 2001

REACTIONS (24)
  - Cardiac disorder [Unknown]
  - Bursitis [Not Recovered/Not Resolved]
  - Pruritus [Recovered/Resolved]
  - Vertigo positional [Unknown]
  - Oedema peripheral [Recovered/Resolved]
  - Gait disturbance [Unknown]
  - Pain [Unknown]
  - Myopathy [Unknown]
  - Pain in extremity [Unknown]
  - Vomiting [Unknown]
  - Depression [Unknown]
  - Mass [Unknown]
  - Myalgia [Not Recovered/Not Resolved]
  - Psoriasis [Unknown]
  - Balance disorder [Not Recovered/Not Resolved]
  - Plantar fasciitis [Unknown]
  - Muscle rupture [Unknown]
  - Erectile dysfunction [Unknown]
  - Malaise [Unknown]
  - Cardiac disorder [Unknown]
  - Fall [Unknown]
  - Musculoskeletal pain [Unknown]
  - Anxiety [Unknown]
  - Asthenia [Unknown]

NARRATIVE: CASE EVENT DATE: 20020424
